FAERS Safety Report 23369539 (Version 1)
Quarter: 2024Q1

REPORT INFORMATION
  Report Type: Spontaneous
  Country: US (occurrence: None)
  Receive Date: 20240104
  Receipt Date: 20240104
  Transmission Date: 20240410
  Serious: Yes (Disabling)
  Sender: FDA-Public Use
  Company Number: None

PATIENT
  Age: 65 Year
  Sex: Male
  Weight: 67.5 kg

DRUGS (16)
  1. REPATHA [Suspect]
     Active Substance: EVOLOCUMAB
     Indication: Blood cholesterol increased
     Dosage: 2 INJECTIONS 2 WEEKS SUBCUTANEOUS
     Route: 058
     Dates: start: 20231215, end: 20240101
  2. METFORMIN [Concomitant]
     Active Substance: METFORMIN HYDROCHLORIDE
  3. JARDIANCE [Concomitant]
     Active Substance: EMPAGLIFLOZIN
  4. GLIPIZIDE [Concomitant]
     Active Substance: GLIPIZIDE
  5. OZEMPIC [Concomitant]
     Active Substance: SEMAGLUTIDE
  6. PLAVIX [Concomitant]
     Active Substance: CLOPIDOGREL BISULFATE
  7. METOPROLOL [Concomitant]
     Active Substance: METOPROLOL
  8. LOSARTAN [Concomitant]
     Active Substance: LOSARTAN
  9. ASPIRIN [Concomitant]
     Active Substance: ASPIRIN
  10. ROSUVASTATIN [Concomitant]
     Active Substance: ROSUVASTATIN
  11. Exetimibe [Concomitant]
  12. FINASTERIDE [Concomitant]
     Active Substance: FINASTERIDE
  13. TAMSULOSIN [Concomitant]
     Active Substance: TAMSULOSIN
  14. BERBERINE [Concomitant]
     Active Substance: BERBERINE
  15. Beet Root [Concomitant]
  16. COENZYME Q10 [Concomitant]
     Active Substance: DIETARY SUPPLEMENT\UBIDECARENONE

REACTIONS (3)
  - Cough [None]
  - Nasopharyngitis [None]
  - Hypertension [None]

NARRATIVE: CASE EVENT DATE: 20240101
